FAERS Safety Report 7514766-5 (Version None)
Quarter: 2011Q2

REPORT INFORMATION
  Report Type: 
  Country: None (occurrence: None)
  Receive Date: 20110601
  Receipt Date: 20110524
  Transmission Date: 20111010
  Serious: Yes (Hospitalization)
  Sender: FDA-Public Use
  Company Number: US-US-EMD SERONO, INC.-7061994

PATIENT
  Sex: Male

DRUGS (2)
  1. CELEXA [Concomitant]
     Indication: DEPRESSED MOOD
     Dates: start: 20110426
  2. REBIF [Suspect]
     Indication: MULTIPLE SCLEROSIS
     Route: 058
     Dates: start: 20110303

REACTIONS (2)
  - INFLUENZA LIKE ILLNESS [None]
  - CONVULSION [None]
